FAERS Safety Report 5854707-X (Version None)
Quarter: 2008Q3

REPORT INFORMATION
  Report Type: 
  Country: None (occurrence: None)
  Receive Date: 20080822
  Receipt Date: 20080811
  Transmission Date: 20090109
  Serious: Yes (Other)
  Sender: FDA-Public Use
  Company Number: GB-PFIZER INC-2008067770

PATIENT
  Age: 48 Year
  Sex: Male
  Weight: 70.5 kg

DRUGS (5)
  1. CHANTIX [Suspect]
     Indication: SMOKING CESSATION THERAPY
     Route: 048
     Dates: start: 20080630, end: 20080707
  2. CLENIL [Concomitant]
     Route: 055
  3. RANITIDINE [Concomitant]
     Route: 048
  4. SALBUTAMOL [Concomitant]
     Route: 055
  5. SALMETEROL [Concomitant]
     Route: 055

REACTIONS (5)
  - CRYING [None]
  - DISTURBANCE IN ATTENTION [None]
  - FEELING ABNORMAL [None]
  - IMPAIRED DRIVING ABILITY [None]
  - PARANOIA [None]
